FAERS Safety Report 9701827 (Version 1)
Quarter: 2013Q4

REPORT INFORMATION
  Report Type: Spontaneous
  Country: US (occurrence: US)
  Receive Date: 20131121
  Receipt Date: 20131121
  Transmission Date: 20140711
  Serious: No
  Sender: FDA-Public Use
  Company Number: US-PFIZER INC-2013332754

PATIENT
  Age: 67 Year
  Sex: Female

DRUGS (10)
  1. XELJANZ [Suspect]
     Indication: RHEUMATOID ARTHRITIS
     Dosage: 5MG (1 TABLET) TWICE DAILY
     Route: 048
     Dates: start: 20131112
  2. ATORVASTATIN CALCIUM [Concomitant]
     Dosage: UNK
  3. BYSTOLIC [Concomitant]
     Dosage: UNK
  4. VALSARTAN [Concomitant]
     Dosage: UNK
  5. FOLIC ACID [Concomitant]
     Dosage: UNK
  6. METHOTREXATE [Concomitant]
     Dosage: UNK
  7. METOCLOPRAMIDE HYDROCHLORIDE [Concomitant]
     Dosage: UNK
  8. SANCTURA [Concomitant]
     Dosage: UNK
  9. VITAMIN D [Concomitant]
     Dosage: UNK
  10. RANITIDINE [Concomitant]
     Dosage: UNK

REACTIONS (1)
  - Frequent bowel movements [Unknown]
